FAERS Safety Report 24828719 (Version 1)
Quarter: 2025Q1

REPORT INFORMATION
  Report Type: Spontaneous
  Country: US (occurrence: US)
  Receive Date: 20250110
  Receipt Date: 20250110
  Transmission Date: 20250409
  Serious: Yes (Other)
  Sender: SANOFI AVENTIS
  Company Number: US-SANOFI-02364399

PATIENT
  Age: 71 Year
  Sex: Male

DRUGS (1)
  1. DUPIXENT [Suspect]
     Active Substance: DUPILUMAB
     Indication: Dermatitis atopic
     Route: 065
     Dates: start: 202403

REACTIONS (5)
  - Squamous cell carcinoma [Unknown]
  - Hordeolum [Unknown]
  - Skin lesion [Unknown]
  - Keratitis [Unknown]
  - Blepharitis [Unknown]

NARRATIVE: CASE EVENT DATE: 20240101
